FAERS Safety Report 23663053 (Version 1)
Quarter: 2024Q1

REPORT INFORMATION
  Report Type: Spontaneous
  Country: US (occurrence: None)
  Receive Date: 20240321
  Receipt Date: 20240321
  Transmission Date: 20240410
  Serious: No
  Sender: FDA-Public Use
  Company Number: None

PATIENT
  Age: 55 Year
  Sex: Female
  Weight: 36.2 kg

DRUGS (2)
  1. GRISEOFULVIN MICROSIZE [Suspect]
     Active Substance: GRISEOFULVIN
     Dosage: FREQUENCY : TWICE A DAY;?
     Route: 048
  2. VALPROIC ACID [Concomitant]
     Active Substance: VALPROIC ACID

REACTIONS (3)
  - Vomiting [None]
  - Hepatitis [None]
  - Transaminases increased [None]

NARRATIVE: CASE EVENT DATE: 20240205
